FAERS Safety Report 18867337 (Version 1)
Quarter: 2021Q1

REPORT INFORMATION
  Report Type: Spontaneous
  Country: US (occurrence: US)
  Receive Date: 20210209
  Receipt Date: 20210209
  Transmission Date: 20210420
  Serious: Yes (Death)
  Sender: FDA-Public Use
  Company Number: None

PATIENT
  Age: 65 Year
  Sex: Female

DRUGS (4)
  1. MEKTOVI [Suspect]
     Active Substance: BINIMETINIB
     Indication: MALIGNANT MELANOMA OF EYELID
     Route: 048
     Dates: start: 20201207, end: 20210208
  2. SYNTHROID [Concomitant]
     Active Substance: LEVOTHYROXINE SODIUM
  3. BRAFTOVI [Suspect]
     Active Substance: ENCORAFENIB
     Indication: MALIGNANT MELANOMA OF EYELID
     Route: 048
     Dates: start: 20201207, end: 20210208
  4. CELEBREX [Concomitant]
     Active Substance: CELECOXIB

REACTIONS (1)
  - Death [None]

NARRATIVE: CASE EVENT DATE: 20210208
